FAERS Safety Report 9156752 (Version 1)
Quarter: 2013Q1

REPORT INFORMATION
  Report Type: Spontaneous
  Country: US (occurrence: None)
  Receive Date: 20130307
  Receipt Date: 20130307
  Transmission Date: 20140127
  Serious: Yes (Other)
  Sender: FDA-Public Use
  Company Number: None

PATIENT
  Sex: Female

DRUGS (1)
  1. GENGRAF [Suspect]
     Route: 048
     Dates: end: 201303

REACTIONS (2)
  - Skin cancer [None]
  - Transplant rejection [None]
